FAERS Safety Report 25631120 (Version 1)
Quarter: 2025Q3

REPORT INFORMATION
  Report Type: Spontaneous
  Country: CN (occurrence: CN)
  Receive Date: 20250801
  Receipt Date: 20250801
  Transmission Date: 20251021
  Serious: Yes (Other)
  Sender: GE HEALTHCARE
  Company Number: None

PATIENT
  Age: 75 Year
  Sex: Male
  Weight: 70 kg

DRUGS (3)
  1. VISIPAQUE [Suspect]
     Active Substance: IODIXANOL
     Indication: Arteriogram
     Route: 041
     Dates: start: 20250716
  2. VISIPAQUE [Suspect]
     Active Substance: IODIXANOL
     Indication: Arteriogram carotid
  3. VISIPAQUE [Suspect]
     Active Substance: IODIXANOL
     Indication: Perfusion brain scan

REACTIONS (5)
  - Burning sensation [Recovering/Resolving]
  - Rash [Recovering/Resolving]
  - Milia [Recovering/Resolving]
  - Pruritus [Recovering/Resolving]
  - Contrast media allergy [Recovering/Resolving]

NARRATIVE: CASE EVENT DATE: 20250716
